FAERS Safety Report 4278270-2 (Version None)
Quarter: 2004Q1

REPORT INFORMATION
  Report Type: 
  Country: None (occurrence: None)
  Receive Date: 20040121
  Receipt Date: 20040109
  Transmission Date: 20041129
  Serious: Yes (Hospitalization)
  Sender: FDA-Public Use
  Company Number: 04P-062-0246911-00

PATIENT
  Age: 38 Year
  Sex: Female
  Weight: 65 kg

DRUGS (4)
  1. AKINETON [Suspect]
     Indication: SUICIDE ATTEMPT
     Dosage: 10 MG, 2 IN 1 D, PER ORAL
     Route: 048
     Dates: start: 20040109, end: 20040109
  2. RANITIDINE [Suspect]
     Indication: SUICIDE ATTEMPT
     Dosage: 300 MG, 29 IN ONCE, PER ORAL
     Route: 048
     Dates: start: 20040109, end: 20040109
  3. SINUPRET [Suspect]
     Indication: SUICIDE ATTEMPT
     Dosage: 1 TABLET, 48 IN ONCE, PER ORAL
     Route: 048
     Dates: start: 20040109, end: 20040109
  4. PROPIVERINE HYDROCHLORIDE [Suspect]
     Indication: SUICIDE ATTEMPT
     Dosage: 15 MG, 10 IN ONCE, PER ORAL
     Route: 048
     Dates: start: 20040109, end: 20040109

REACTIONS (1)
  - SUICIDE ATTEMPT [None]
